FAERS Safety Report 12563644 (Version 2)
Quarter: 2016Q4

REPORT INFORMATION
  Report Type: Spontaneous
  Country: CY (occurrence: CY)
  Receive Date: 20160715
  Receipt Date: 20161005
  Transmission Date: 20170207
  Serious: Yes (Death, Other)
  Sender: FDA-Public Use
  Company Number: PHHY2016CY096822

PATIENT
  Age: 55 Year
  Sex: Male
  Weight: 70 kg

DRUGS (1)
  1. TASIGNA [Suspect]
     Active Substance: NILOTINIB
     Indication: CHRONIC MYELOID LEUKAEMIA
     Dosage: 400 MG, BID
     Route: 065
     Dates: start: 200810

REACTIONS (10)
  - Helicobacter infection [Unknown]
  - Loss of consciousness [Unknown]
  - Coronary artery occlusion [Unknown]
  - Arrhythmia [Fatal]
  - Gastric haemorrhage [Unknown]
  - Hyperchlorhydria [Unknown]
  - Abdominal pain upper [Unknown]
  - Myocardial infarction [Fatal]
  - Haematemesis [Fatal]
  - Syncope [Unknown]

NARRATIVE: CASE EVENT DATE: 201604
